FAERS Safety Report 9189918 (Version 1)
Quarter: 2013Q1

REPORT INFORMATION
  Report Type: Spontaneous
  Country: GB (occurrence: GB)
  Receive Date: 20130326
  Receipt Date: 20130326
  Transmission Date: 20140127
  Serious: Yes (Other)
  Sender: FDA-Public Use
  Company Number: GB-PFIZER INC-2013091215

PATIENT
  Age: 88 Year
  Sex: Female
  Weight: 77 kg

DRUGS (19)
  1. DOXYCYCLINE MONOHYDRATE [Suspect]
     Dosage: UNK
     Dates: start: 20130306
  2. QVAR [Concomitant]
     Dosage: UNK
     Dates: start: 20121005
  3. ADCAL [Concomitant]
     Dosage: UNK
     Dates: start: 20121123, end: 20130212
  4. CO-CODAMOL [Concomitant]
     Dosage: UNK
     Dates: start: 20121123
  5. HYPROMELLOSE [Concomitant]
     Dosage: UNK
     Dates: start: 20121123
  6. IPRATROPIUM BROMIDE [Concomitant]
     Dosage: UNK
     Dates: start: 20121123
  7. LACTULOSE [Concomitant]
     Dosage: UNK
     Dates: start: 20121123, end: 20130212
  8. LEVOTHYROXINE [Concomitant]
     Dosage: UNK
     Dates: start: 20121123
  9. OMEPRAZOLE [Concomitant]
     Dosage: UNK
     Dates: start: 20121123
  10. SALBUTAMOL [Concomitant]
     Dosage: UNK
     Dates: start: 20121123
  11. SALMETEROL [Concomitant]
     Dosage: UNK
     Dates: start: 20121123
  12. TRIMETHOPRIM [Concomitant]
     Dosage: UNK
     Dates: start: 20121123
  13. PREDNISOLONE [Concomitant]
     Dosage: UNK
     Dates: start: 20121212, end: 20121219
  14. AMOXICILLIN [Concomitant]
     Dosage: UNK
     Dates: start: 20121231, end: 20130107
  15. NAPROXEN [Concomitant]
     Dosage: UNK
     Dates: start: 20130107, end: 20130121
  16. LACRI-LUBE [Concomitant]
     Dosage: UNK
     Dates: start: 20130115, end: 20130225
  17. PARACETAMOL [Concomitant]
     Dosage: UNK
     Dates: start: 20130207, end: 20130217
  18. TRAMADOL [Concomitant]
     Dosage: UNK
     Dates: start: 20130207, end: 20130214
  19. VISCOTEARS [Concomitant]
     Dosage: UNK
     Dates: start: 20130220, end: 20130227

REACTIONS (1)
  - Vision blurred [Recovered/Resolved]
